FAERS Safety Report 6707614-4 (Version None)
Quarter: 2010Q2

REPORT INFORMATION
  Report Type: 
  Country: None (occurrence: None)
  Receive Date: 20100503
  Receipt Date: 20090817
  Transmission Date: 20101027
  Serious: Yes (Other)
  Sender: FDA-Public Use
  Company Number: US-BAYER-200913493BCC

PATIENT
  Age: 15 Year
  Sex: Female
  Weight: 68 kg

DRUGS (1)
  1. BACTINE LIQUID [Suspect]
     Indication: COSMETIC BODY PIERCING
     Dosage: ACCIDENTALLY SNIFFED AND FELT THE PRODUCT GO DOWN HER THROAT
     Route: 061

REACTIONS (3)
  - HYPERSENSITIVITY [None]
  - PARAESTHESIA MUCOSAL [None]
  - PHARYNGEAL OEDEMA [None]
